FAERS Safety Report 8407080-7 (Version None)
Quarter: 2012Q2

REPORT INFORMATION
  Report Type: 
  Country: None (occurrence: None)
  Receive Date: 20120323
  Receipt Date: 20110518
  Transmission Date: 20120825
  Serious: Yes (Hospitalization)
  Sender: FDA-Public Use
  Company Number: 163-21880-11052374

PATIENT
  Age: 59 Year
  Sex: Female
  Weight: 101.1521 kg

DRUGS (5)
  1. REVLIMID [Suspect]
     Indication: MULTIPLE MYELOMA
     Dosage: 25 MG, DAILY X 14 DAYS/OFF 7 DAYS, PO
     Route: 048
     Dates: start: 20110401
  2. DIOVAN [Concomitant]
  3. AMBIEN [Concomitant]
  4. DICLOFENAC SODIUM [Concomitant]
  5. NEXIUM [Concomitant]

REACTIONS (2)
  - NIGHT SWEATS [None]
  - CHEST PAIN [None]
